FAERS Safety Report 5488316-1 (Version None)
Quarter: 2007Q4

REPORT INFORMATION
  Report Type: 
  Country: None (occurrence: None)
  Receive Date: 20071005
  Receipt Date: 20070814
  Transmission Date: 20080405
  Serious: No
  Sender: FDA-Public Use
  Company Number: PHEH2007US11132

PATIENT
  Sex: Male

DRUGS (2)
  1. TEKTURNA [Suspect]
     Dosage: ORAL
     Route: 048
     Dates: start: 20070813
  2. LUNESTA [Suspect]
     Dosage: ORAL

REACTIONS (1)
  - INSOMNIA [None]
